FAERS Safety Report 12188682 (Version 2)
Quarter: 2016Q1

REPORT INFORMATION
  Report Type: Spontaneous
  Country: FR (occurrence: FR)
  Receive Date: 20160317
  Receipt Date: 20160325
  Transmission Date: 20160526
  Serious: No
  Sender: FDA-Public Use
  Company Number: FR-WATSON-2016-05874

PATIENT
  Age: 28 Year
  Sex: Male

DRUGS (1)
  1. RISPERIDONE (UNKNOWN) [Suspect]
     Active Substance: RISPERIDONE
     Indication: SCHIZOID PERSONALITY DISORDER
     Dosage: UNK
     Route: 065

REACTIONS (3)
  - Sedation [Unknown]
  - Erectile dysfunction [Unknown]
  - Libido decreased [Unknown]
